FAERS Safety Report 6794726-2 (Version None)
Quarter: 2010Q2

REPORT INFORMATION
  Report Type: 
  Country: None (occurrence: None)
  Receive Date: 20100624
  Receipt Date: 20100624
  Transmission Date: 20101027
  Serious: Yes (Hospitalization)
  Sender: FDA-Public Use
  Company Number: None

PATIENT
  Weight: 103 kg

DRUGS (1)
  1. DOXAZOSIN MESYLATE [Suspect]
     Dosage: 2MG QD PO
     Route: 048

REACTIONS (3)
  - FACIAL BONES FRACTURE [None]
  - FALL [None]
  - UNEVALUABLE EVENT [None]
